FAERS Safety Report 15159660 (Version 1)
Quarter: 2018Q3

REPORT INFORMATION
  Report Type: Spontaneous
  Country: US (occurrence: US)
  Receive Date: 20180718
  Receipt Date: 20180718
  Transmission Date: 20181010
  Serious: Yes (Other)
  Sender: FDA-Public Use
  Company Number: US-JNJFOC-20180719585

PATIENT
  Age: 6 Decade
  Sex: Male

DRUGS (1)
  1. XARELTO [Suspect]
     Active Substance: RIVAROXABAN
     Indication: PRODUCT USED FOR UNKNOWN INDICATION
     Route: 048

REACTIONS (7)
  - Peripheral arterial occlusive disease [Unknown]
  - Ischaemic stroke [Unknown]
  - Nephropathy [Unknown]
  - Hypertension [Unknown]
  - General physical condition abnormal [Unknown]
  - Cardiac failure congestive [Unknown]
  - Blood cholesterol increased [Unknown]
